FAERS Safety Report 10507924 (Version 1)
Quarter: 2014Q3

REPORT INFORMATION
  Report Type: Spontaneous
  Country: US (occurrence: None)
  Receive Date: 20140915
  Receipt Date: 20140915
  Transmission Date: 20150326
  Serious: Yes (Other)
  Sender: FDA-Public Use
  Company Number: 2013-US-000305

PATIENT
  Age: 61 Year
  Sex: Female

DRUGS (3)
  1. XYREM [Suspect]
     Active Substance: SODIUM OXYBATE
     Indication: CATAPLEXY
     Route: 048
     Dates: start: 20130329
  2. CLONAZEPAM. [Concomitant]
     Active Substance: CLONAZEPAM
  3. XYREM [Suspect]
     Active Substance: SODIUM OXYBATE
     Indication: NARCOLEPSY
     Route: 048
     Dates: start: 20130329

REACTIONS (13)
  - Dizziness [None]
  - Depression [None]
  - Fibromyalgia [None]
  - Autonomic nervous system imbalance [None]
  - Urinary incontinence [None]
  - Pain [None]
  - Contusion [None]
  - Confusional state [None]
  - Somnolence [None]
  - Dyskinesia [None]
  - Faecal incontinence [None]
  - Anxiety [None]
  - Poor quality sleep [None]
